FAERS Safety Report 16613502 (Version 1)
Quarter: 2019Q3

REPORT INFORMATION
  Report Type: Spontaneous
  Country: US (occurrence: US)
  Receive Date: 20190608
  Receipt Date: 20190608
  Transmission Date: 20191004
  Serious: Yes (Death)
  Sender: FDA-Public Use
  Company Number: None

PATIENT
  Age: 90 Year
  Sex: Male

DRUGS (1)
  1. ABACAVIR SULFATE -LAMIVUDINE TAB 600-300MG [Suspect]
     Active Substance: ABACAVIR SULFATE\LAMIVUDINE
     Route: 048
     Dates: start: 201810, end: 201901

REACTIONS (1)
  - Death [None]

NARRATIVE: CASE EVENT DATE: 20190115
